FAERS Safety Report 18827948 (Version 1)
Quarter: 2021Q1

REPORT INFORMATION
  Report Type: Spontaneous
  Country: US (occurrence: US)
  Receive Date: 20210202
  Receipt Date: 20210202
  Transmission Date: 20210419
  Serious: Yes (Other)
  Sender: FDA-Public Use
  Company Number: US-ABBVIE-21K-163-3752578-00

PATIENT
  Age: 51 Year
  Sex: Male

DRUGS (1)
  1. HUMIRA [Suspect]
     Active Substance: ADALIMUMAB
     Indication: PSORIATIC ARTHROPATHY
     Route: 058
     Dates: start: 20180308, end: 20180427

REACTIONS (12)
  - Glomerulonephritis acute [Unknown]
  - Dyspnoea [Unknown]
  - Escherichia bacteraemia [Unknown]
  - Mycobacterium abscessus infection [Unknown]
  - Productive cough [Unknown]
  - Renal failure [Unknown]
  - Nephrotic syndrome [Unknown]
  - Fluid overload [Unknown]
  - Interstitial lung disease [Unknown]
  - Peripheral swelling [Unknown]
  - Cardiac failure congestive [Unknown]
  - Insomnia [Unknown]

NARRATIVE: CASE EVENT DATE: 20180427
